FAERS Safety Report 5999387-8 (Version None)
Quarter: 2008Q4

REPORT INFORMATION
  Report Type: 
  Country: None (occurrence: None)
  Receive Date: 20081211
  Receipt Date: 20081126
  Transmission Date: 20090506
  Serious: Yes (Other)
  Sender: FDA-Public Use
  Company Number: 230790J07USA

PATIENT
  Age: 57 Year
  Sex: Female
  Weight: 67 kg

DRUGS (4)
  1. REBIF [Suspect]
     Indication: OFF LABEL USE
     Dosage: 44 MCG, 3 IN 1 WEEKS, SUBCUTANEOUS
     Route: 058
     Dates: start: 20070916
  2. NIACIN [Suspect]
     Indication: HYPERLIPIDAEMIA
     Dosage: NOT REPORTED, NOT REPORTED, ORAL
     Route: 048
  3. TEGRETOL [Suspect]
     Indication: TRIGEMINAL NEURALGIA
     Dosage: NOT REPORTED, NOT REPORTED, ORAL
     Route: 048
  4. PREDNISONE [Concomitant]

REACTIONS (2)
  - DRUG TOXICITY [None]
  - HEPATIC NECROSIS [None]
